FAERS Safety Report 14555251 (Version 1)
Quarter: 2018Q1

REPORT INFORMATION
  Report Type: Spontaneous
  Country: US (occurrence: US)
  Receive Date: 20180219
  Receipt Date: 20180219
  Transmission Date: 20180509
  Serious: Yes (Hospitalization)
  Sender: FDA-Public Use
  Company Number: None

PATIENT
  Age: 26 Year
  Sex: Female
  Weight: 67.5 kg

DRUGS (2)
  1. MISOPROSTOL. [Suspect]
     Active Substance: MISOPROSTOL
     Dates: start: 20180129
  2. CYTOTEC [Concomitant]
     Active Substance: MISOPROSTOL

REACTIONS (3)
  - Endometritis [None]
  - Induced abortion failed [None]
  - Retained products of conception [None]

NARRATIVE: CASE EVENT DATE: 20180217
